FAERS Safety Report 21175747 (Version 1)
Quarter: 2022Q3

REPORT INFORMATION
  Report Type: Spontaneous
  Country: GR (occurrence: GR)
  Receive Date: 20220805
  Receipt Date: 20220805
  Transmission Date: 20221027
  Serious: No
  Sender: FDA-Public Use
  Company Number: GR-PFIZER INC-PV202200028450

PATIENT
  Age: 8 Year
  Sex: Female
  Weight: 23 kg

DRUGS (1)
  1. GENOTROPIN [Suspect]
     Active Substance: SOMATROPIN
     Dosage: UNK, 5.3 MG PEN
     Route: 058
     Dates: start: 202103

REACTIONS (1)
  - Device issue [Unknown]
